FAERS Safety Report 6622600-0 (Version None)
Quarter: 2010Q1

REPORT INFORMATION
  Report Type: 
  Country: None (occurrence: None)
  Receive Date: 20100310
  Receipt Date: 20100114
  Transmission Date: 20100710
  Serious: No
  Sender: FDA-Public Use
  Company Number: US-BIOGENIDEC-2010BI001412

PATIENT
  Age: 55 Year
  Sex: Female

DRUGS (1)
  1. AVONEX [Suspect]
     Indication: MULTIPLE SCLEROSIS
     Route: 030
     Dates: start: 20040701

REACTIONS (6)
  - DIZZINESS [None]
  - FATIGUE [None]
  - FEELING DRUNK [None]
  - HEADACHE [None]
  - IMPAIRED DRIVING ABILITY [None]
  - THYROID FUNCTION TEST ABNORMAL [None]
